FAERS Safety Report 19028715 (Version 1)
Quarter: 2021Q1

REPORT INFORMATION
  Report Type: Spontaneous
  Country: CA (occurrence: CA)
  Receive Date: 20210318
  Receipt Date: 20210318
  Transmission Date: 20210420
  Serious: Yes (Hospitalization, Other)
  Sender: FDA-Public Use
  Company Number: CA-B.I. PHARMACEUTICALS,INC./RIDGEFIELD-2021-BI-090759

PATIENT
  Age: 69 Year
  Sex: Female

DRUGS (10)
  1. FORMOTEROL;MOMETASONE [Suspect]
     Active Substance: FORMOTEROL\MOMETASONE
     Indication: PRODUCT USED FOR UNKNOWN INDICATION
     Dosage: DOSE: 2 DOSAGE FORMS
     Route: 055
  2. SPIRIVA [Suspect]
     Active Substance: TIOTROPIUM BROMIDE MONOHYDRATE
     Indication: PRODUCT USED FOR UNKNOWN INDICATION
     Route: 065
  3. ATROVENT [Suspect]
     Active Substance: IPRATROPIUM BROMIDE
     Indication: PRODUCT USED FOR UNKNOWN INDICATION
     Route: 065
  4. NUCALA [Suspect]
     Active Substance: MEPOLIZUMAB
     Indication: ASTHMA
     Route: 042
  5. BUDESONIDE;FORMOTEROL FUMARATE [Suspect]
     Active Substance: BUDESONIDE\FORMOTEROL FUMARATE
     Indication: PRODUCT USED FOR UNKNOWN INDICATION
     Dosage: DOSE: 2 DOSAGE FORMS
     Route: 055
  6. FLOVENT [Suspect]
     Active Substance: FLUTICASONE PROPIONATE
     Indication: PRODUCT USED FOR UNKNOWN INDICATION
     Route: 065
  7. ALVESCO [Suspect]
     Active Substance: CICLESONIDE
     Indication: PRODUCT USED FOR UNKNOWN INDICATION
     Dosage: DOSE: 2 DOSAGE FORMS
     Route: 055
  8. BUDESONIDE;FORMOTEROL FUMARATE [Suspect]
     Active Substance: BUDESONIDE\FORMOTEROL FUMARATE
     Dosage: DOSE: 2 DOSAGE FORMS
     Route: 055
  9. SINGULAIR [Suspect]
     Active Substance: MONTELUKAST SODIUM
     Indication: PRODUCT USED FOR UNKNOWN INDICATION
     Route: 055
  10. SALBUTAMOL SULFATE [Suspect]
     Active Substance: ALBUTEROL SULFATE
     Indication: PRODUCT USED FOR UNKNOWN INDICATION
     Route: 065

REACTIONS (7)
  - Sleep disorder due to a general medical condition [Recovered/Resolved]
  - Wheezing [Recovered/Resolved]
  - Asthma [Recovered/Resolved]
  - Dyspnoea [Recovered/Resolved]
  - Asthmatic crisis [Recovered/Resolved]
  - Blood count abnormal [Recovered/Resolved]
  - Loss of personal independence in daily activities [Recovered/Resolved]
